FAERS Safety Report 5003395-3 (Version None)
Quarter: 2006Q2

REPORT INFORMATION
  Report Type: 
  Country: None (occurrence: None)
  Receive Date: 20060511
  Receipt Date: 20060428
  Transmission Date: 20061013
  Serious: Yes (Other)
  Sender: FDA-Public Use
  Company Number: 2006058759

PATIENT
  Sex: Male

DRUGS (3)
  1. PHENYTOIN SODIUM [Suspect]
     Indication: EPILEPSY
     Dosage: 15 ML (5 ML, 3 IN 1 D), ORAL
     Route: 048
     Dates: start: 20050101, end: 20050101
  2. HIDANTAL (PHENYTOIN) [Suspect]
     Indication: EPILEPSY
     Dosage: 400 MG (100 MG, 1 D), ORAL
     Route: 048
     Dates: start: 20050101
  3. LORAZEPAM [Concomitant]

REACTIONS (5)
  - CONVULSION [None]
  - DRUG EFFECT DECREASED [None]
  - DYSPEPSIA [None]
  - HEADACHE [None]
  - THERAPEUTIC RESPONSE UNEXPECTED WITH DRUG SUBSTITUTION [None]
